FAERS Safety Report 9284036 (Version 1)
Quarter: 2013Q2

REPORT INFORMATION
  Report Type: Spontaneous
  Country: US (occurrence: US)
  Receive Date: 20130510
  Receipt Date: 20130510
  Transmission Date: 20140414
  Serious: Yes (Other)
  Sender: FDA-Public Use
  Company Number: US-BRISTOL-MYERS SQUIBB COMPANY-18587899

PATIENT
  Age: 45 Year
  Sex: Male
  Weight: 151.47 kg

DRUGS (5)
  1. BYETTA PEN DISPOSABLE [Suspect]
     Indication: TYPE 2 DIABETES MELLITUS
     Dates: start: 200811, end: 200911
  2. JANUVIA [Concomitant]
     Indication: TYPE 2 DIABETES MELLITUS
     Dates: start: 200911, end: 201012
  3. ANDROGEL [Concomitant]
  4. NIASPAN [Concomitant]
  5. VITAMIN D [Concomitant]

REACTIONS (2)
  - Pancreatic carcinoma [Unknown]
  - Pancreatitis acute [Unknown]
